FAERS Safety Report 8605007-6 (Version None)
Quarter: 2012Q3

REPORT INFORMATION
  Report Type: 
  Country: None (occurrence: None)
  Receive Date: 20120820
  Receipt Date: 20120809
  Transmission Date: 20120928
  Serious: Yes (Other)
  Sender: FDA-Public Use
  Company Number: CN-ASTRAZENECA-2012SE58078

PATIENT
  Age: 570 Month
  Sex: Female
  Weight: 52 kg

DRUGS (2)
  1. MEDLAR DESLORATADINE [Concomitant]
     Indication: ANTIALLERGIC THERAPY
     Route: 048
     Dates: start: 20101117, end: 20101119
  2. BUDESONIDE [Suspect]
     Indication: ANTIALLERGIC THERAPY
     Dosage: 1 UNIT DAILY
     Route: 045
     Dates: start: 20101117, end: 20101119

REACTIONS (3)
  - CHILLS [None]
  - SPEECH DISORDER [None]
  - VOMITING [None]
